FAERS Safety Report 22288654 (Version 1)
Quarter: 2023Q2

REPORT INFORMATION
  Report Type: Spontaneous
  Country: CN (occurrence: CN)
  Receive Date: 20230505
  Receipt Date: 20230505
  Transmission Date: 20230722
  Serious: Yes (Other)
  Sender: FDA-Public Use
  Company Number: CN-MYLANLABS-2023M1046350

PATIENT
  Age: 50 Year
  Sex: Female
  Weight: 65 kg

DRUGS (1)
  1. CELEBREX [Suspect]
     Active Substance: CELECOXIB
     Indication: Tenosynovitis
     Dosage: 200 MILLIGRAM, QD
     Route: 048
     Dates: start: 20230417, end: 20230419

REACTIONS (1)
  - Foreign body in throat [Recovering/Resolving]

NARRATIVE: CASE EVENT DATE: 20230417
